FAERS Safety Report 21243137 (Version 1)
Quarter: 2022Q3

REPORT INFORMATION
  Report Type: Spontaneous
  Country: US (occurrence: None)
  Receive Date: 20220822
  Receipt Date: 20220822
  Transmission Date: 20221027
  Serious: Yes (Disabling)
  Sender: FDA-Public Use
  Company Number: None

PATIENT
  Age: 50 Year
  Sex: Male
  Weight: 83.25 kg

DRUGS (1)
  1. ZESTRIL [Suspect]
     Active Substance: LISINOPRIL
     Indication: Hypertension
     Dosage: OTHER QUANTITY : 1 TABLET(S);?FREQUENCY : TWICE A DAY;?
     Route: 048
     Dates: start: 20220612, end: 20220801

REACTIONS (1)
  - Cough [None]

NARRATIVE: CASE EVENT DATE: 20220612
